FAERS Safety Report 17416594 (Version 1)
Quarter: 2020Q1

REPORT INFORMATION
  Report Type: Spontaneous
  Country: US (occurrence: US)
  Receive Date: 20200213
  Receipt Date: 20200213
  Transmission Date: 20200409
  Serious: Yes (Disabling)
  Sender: FDA-Public Use
  Company Number: None

PATIENT
  Age: 47 Year
  Sex: Male
  Weight: 96.75 kg

DRUGS (3)
  1. MULTIVITAMIN [Concomitant]
     Active Substance: VITAMINS
  2. FINISTERIDE 5 MG [Suspect]
     Active Substance: FINASTERIDE
     Indication: BENIGN PROSTATIC HYPERPLASIA
     Route: 048
     Dates: start: 20170725, end: 20200126
  3. VITAMIN D [Concomitant]
     Active Substance: VITAMIN D NOS

REACTIONS (11)
  - Anxiety [None]
  - Suicidal ideation [None]
  - Rash [None]
  - Post-traumatic stress disorder [None]
  - Mental impairment [None]
  - Panic attack [None]
  - Palpitations [None]
  - Disturbance in attention [None]
  - Depression [None]
  - Libido decreased [None]
  - Penis disorder [None]

NARRATIVE: CASE EVENT DATE: 20200126
